FAERS Safety Report 6278670-5 (Version None)
Quarter: 2009Q3

REPORT INFORMATION
  Report Type: 
  Country: None (occurrence: None)
  Receive Date: 20090722
  Receipt Date: 20090714
  Transmission Date: 20100115
  Serious: Yes (Hospitalization, Other)
  Sender: FDA-Public Use
  Company Number: US-AMGEN-QUU355977

PATIENT
  Sex: Female

DRUGS (2)
  1. ENBREL [Suspect]
     Indication: RHEUMATOID ARTHRITIS
     Route: 058
     Dates: start: 19990316
  2. SULFASALAZINE [Concomitant]
     Route: 048

REACTIONS (4)
  - CHOLECYSTECTOMY [None]
  - CHOLECYSTITIS INFECTIVE [None]
  - LIVER ABSCESS [None]
  - RHEUMATOID ARTHRITIS [None]
